FAERS Safety Report 10204490 (Version 3)
Quarter: 2014Q2

REPORT INFORMATION
  Report Type: Spontaneous
  Country: IT (occurrence: IT)
  Receive Date: 20140529
  Receipt Date: 20140619
  Transmission Date: 20141212
  Serious: Yes (Hospitalization)
  Sender: FDA-Public Use
  Company Number: IT-AMGEN-ITASP2014038729

PATIENT
  Age: 32 Year
  Sex: Male

DRUGS (9)
  1. ARANESP [Suspect]
     Indication: DIABETES MELLITUS
     Dosage: 20 MUG, QWK
     Route: 042
     Dates: start: 20130430
  2. TRIATEC                            /00116401/ [Concomitant]
     Dosage: 10 MG, UNK
     Dates: start: 20130430, end: 20140519
  3. DIBASE [Concomitant]
     Dosage: 2.5 ML, UNK
     Route: 048
     Dates: start: 20130430, end: 20140519
  4. DIAZEPAM ABC [Concomitant]
     Dosage: 5 MG/ML, UNK
     Route: 048
     Dates: start: 20130430, end: 20140519
  5. SODIUM CARBONATE [Concomitant]
     Dosage: 500 MG, UNK
     Dates: start: 20130430, end: 20140519
  6. BENEXOL                            /00176001/ [Concomitant]
     Dosage: UNK
     Dates: start: 20130430, end: 20140519
  7. FOLIC ACID [Concomitant]
     Dosage: 5 MG, UNK
     Dates: start: 20130430, end: 20140519
  8. FERRO GRAD C [Concomitant]
     Dosage: 105/500 MG, UNK
     Dates: start: 20130430, end: 20140519
  9. INSUMAN RAPID [Concomitant]
     Indication: DIABETES MELLITUS
     Dosage: 100 IU/ML, QD
     Route: 058
     Dates: start: 20130430, end: 20130702

REACTIONS (1)
  - Hypoglycaemia [Recovered/Resolved]
